FAERS Safety Report 17083236 (Version 1)
Quarter: 2019Q4

REPORT INFORMATION
  Report Type: Spontaneous
  Country: US (occurrence: US)
  Receive Date: 20191127
  Receipt Date: 20191127
  Transmission Date: 20200122
  Serious: Yes (Other)
  Sender: FDA-Public Use
  Company Number: US-MYLANLABS-2019M1114601

PATIENT
  Sex: Male
  Weight: 70 kg

DRUGS (3)
  1. ALPRAZOLAM TABLETS, USP [Suspect]
     Active Substance: ALPRAZOLAM
     Dosage: UNK UNK, BID
     Route: 048
     Dates: start: 2019
  2. ALPRAZOLAM TABLETS, USP [Suspect]
     Active Substance: ALPRAZOLAM
     Indication: ANXIETY
     Dosage: UNK, BID (TWICE DAILY)
     Route: 048
     Dates: start: 201901, end: 2019
  3. LYRICA [Concomitant]
     Active Substance: PREGABALIN
     Dosage: UNK

REACTIONS (2)
  - Recalled product administered [Unknown]
  - Helicobacter infection [Recovering/Resolving]

NARRATIVE: CASE EVENT DATE: 2019
